FAERS Safety Report 20697347 (Version 1)
Quarter: 2022Q2

REPORT INFORMATION
  Report Type: Spontaneous
  Country: US (occurrence: None)
  Receive Date: 20220408
  Receipt Date: 20220408
  Transmission Date: 20220721
  Serious: No
  Sender: FDA-Public Use
  Company Number: None

PATIENT
  Sex: Female

DRUGS (1)
  1. TALTZ [Suspect]
     Active Substance: IXEKIZUMAB
     Indication: Psoriasis
     Dosage: FREQUENCY : MONTHLY;?
     Route: 058
     Dates: start: 202201

REACTIONS (6)
  - Therapy non-responder [None]
  - Pain [None]
  - Drug hypersensitivity [None]
  - Peripheral swelling [None]
  - Peripheral swelling [None]
  - Adverse drug reaction [None]
